FAERS Safety Report 13523577 (Version 3)
Quarter: 2017Q4

REPORT INFORMATION
  Report Type: Spontaneous
  Country: US (occurrence: US)
  Receive Date: 20170508
  Receipt Date: 20171207
  Transmission Date: 20180320
  Serious: No
  Sender: FDA-Public Use
  Company Number: US-VIFOR (INTERNATIONAL) INC.-VIT-2017-02045

PATIENT
  Sex: Male
  Weight: 71.73 kg

DRUGS (13)
  1. ERGOCALCIFEROL. [Concomitant]
     Active Substance: ERGOCALCIFEROL
  2. BYSTOLIC [Concomitant]
     Active Substance: NEBIVOLOL HYDROCHLORIDE
  3. B12-ACTIVE [Concomitant]
  4. FISH OIL [Concomitant]
     Active Substance: FISH OIL
  5. IRBESARTAN. [Concomitant]
     Active Substance: IRBESARTAN
  6. PROTONIX [Concomitant]
     Active Substance: PANTOPRAZOLE SODIUM
  7. DOXAZOSIN MESILATE [Concomitant]
     Active Substance: DOXAZOSIN MESYLATE
  8. AMLODIPINE BESILATE [Concomitant]
     Active Substance: AMLODIPINE BESYLATE
  9. ASCORBIC ACID. [Concomitant]
     Active Substance: ASCORBIC ACID
  10. CHLORTALIDONE [Concomitant]
     Active Substance: CHLORTHALIDONE
  11. VELTASSA [Suspect]
     Active Substance: PATIROMER
     Route: 048
  12. VELTASSA [Suspect]
     Active Substance: PATIROMER
     Indication: HYPERKALAEMIA
     Route: 048
     Dates: start: 20160409
  13. VELTASSA [Suspect]
     Active Substance: PATIROMER
     Route: 048

REACTIONS (1)
  - Blood potassium decreased [Unknown]

NARRATIVE: CASE EVENT DATE: 2017
